FAERS Safety Report 19484093 (Version 1)
Quarter: 2021Q3

REPORT INFORMATION
  Report Type: Spontaneous
  Country: BG (occurrence: BG)
  Receive Date: 20210701
  Receipt Date: 20210701
  Transmission Date: 20211014
  Serious: Yes (Hospitalization, Other)
  Sender: FDA-Public Use
  Company Number: NVSC2021BG148039

PATIENT
  Age: 7 Decade
  Sex: Female

DRUGS (3)
  1. BISOPROLOL FUMARATE. [Suspect]
     Active Substance: BISOPROLOL FUMARATE
     Indication: PRODUCT USED FOR UNKNOWN INDICATION
     Dosage: 5 MG, 2X PER DAY
     Route: 065
  2. RAMIPRIL. [Concomitant]
     Active Substance: RAMIPRIL
     Indication: PRODUCT USED FOR UNKNOWN INDICATION
     Dosage: 5 MG, 2X PER DAY
     Route: 065
  3. AMIODARONE HYDROCHLORIDE. [Interacting]
     Active Substance: AMIODARONE HYDROCHLORIDE
     Indication: ATRIAL FIBRILLATION
     Dosage: 4600 MG
     Route: 065

REACTIONS (4)
  - Electrocardiogram QT prolonged [Recovered/Resolved with Sequelae]
  - Arrhythmia [Recovered/Resolved with Sequelae]
  - Drug interaction [Unknown]
  - Cardiac failure [Recovered/Resolved with Sequelae]
